FAERS Safety Report 9567753 (Version 2)
Quarter: 2013Q3

REPORT INFORMATION
  Report Type: Spontaneous
  Country: US (occurrence: US)
  Receive Date: 20130930
  Receipt Date: 20130930
  Transmission Date: 20140515
  Serious: No
  Sender: FDA-Public Use
  Company Number: US-AMGEN-USASP2013039300

PATIENT
  Age: 18 Year
  Sex: Female
  Weight: 88 kg

DRUGS (4)
  1. ENBREL [Suspect]
     Indication: PSORIATIC ARTHROPATHY
     Dosage: 50 MG, QWK
     Route: 058
     Dates: start: 20130103
  2. ENBREL [Suspect]
     Indication: JUVENILE IDIOPATHIC ARTHRITIS
  3. ETODOLAC [Concomitant]
     Indication: PAIN
     Dosage: 600 MG, BID
     Route: 048
     Dates: start: 20120831
  4. HYDROXYCHLOROQUINE [Concomitant]
     Dosage: 200 MG, QD
     Dates: start: 20090804

REACTIONS (2)
  - Mononucleosis syndrome [Recovered/Resolved]
  - Infection [Unknown]
